FAERS Safety Report 4898074-7 (Version None)
Quarter: 2006Q1

REPORT INFORMATION
  Report Type: 
  Country: None (occurrence: None)
  Receive Date: 20060130
  Receipt Date: 20060118
  Transmission Date: 20060701
  Serious: Yes (Other)
  Sender: FDA-Public Use
  Company Number: US016496

PATIENT
  Age: 59 Year
  Sex: Female

DRUGS (6)
  1. GABITRIL [Suspect]
     Dosage: 12 MG QD ORAL
     Route: 048
  2. OXYCONTIN [Concomitant]
  3. QUETIAPINE [Concomitant]
  4. SOMA [Concomitant]
  5. BUPROPION [Concomitant]
  6. LEXAPRO [Concomitant]

REACTIONS (7)
  - CONFUSIONAL STATE [None]
  - DISEASE RECURRENCE [None]
  - ENCEPHALOPATHY [None]
  - PSYCHOMOTOR RETARDATION [None]
  - SOCIAL AVOIDANT BEHAVIOUR [None]
  - SPEECH DISORDER [None]
  - TREMOR [None]
